FAERS Safety Report 16081091 (Version 2)
Quarter: 2019Q4

REPORT INFORMATION
  Report Type: Spontaneous
  Country: US (occurrence: US)
  Receive Date: 20190316
  Receipt Date: 20191017
  Transmission Date: 20200122
  Serious: No
  Sender: FDA-Public Use
  Company Number: US-TEVA-2019-US-1016818

PATIENT
  Sex: Male

DRUGS (1)
  1. ELETRIPTAN HYDROBROMIDE TEVA [Suspect]
     Active Substance: ELETRIPTAN HYDROBROMIDE
     Indication: MIGRAINE
     Dosage: AS NEEDED
     Route: 048
     Dates: start: 2017

REACTIONS (4)
  - Hypoaesthesia [Recovering/Resolving]
  - Product substitution issue [Unknown]
  - Drug ineffective [Unknown]
  - Muscular weakness [Recovering/Resolving]

NARRATIVE: CASE EVENT DATE: 2017
